FAERS Safety Report 7085372-4 (Version None)
Quarter: 2010Q4

REPORT INFORMATION
  Report Type: 
  Country: None (occurrence: None)
  Receive Date: 20101105
  Receipt Date: 20101025
  Transmission Date: 20110411
  Serious: Yes (Other)
  Sender: FDA-Public Use
  Company Number: PHHY2010ES71783

PATIENT
  Age: 78 Year
  Sex: Female

DRUGS (5)
  1. ZOMETA [Suspect]
     Indication: METASTASES TO BONE
     Dosage: 5 ML
     Route: 042
     Dates: start: 20090703, end: 20100311
  2. AROMASIL [Concomitant]
     Indication: BREAST CANCER
     Dosage: UNK
     Dates: start: 20090703, end: 20100114
  3. FASLODEX [Concomitant]
     Indication: BREAST CANCER
     Dosage: UNK
     Route: 030
     Dates: start: 20090114
  4. CALCIUM [Concomitant]
  5. VITAMIN D [Concomitant]

REACTIONS (1)
  - OSTEONECROSIS OF JAW [None]
